FAERS Safety Report 10156983 (Version 2)
Quarter: 2015Q3

REPORT INFORMATION
  Report Type: Spontaneous
  Country: FR (occurrence: FR)
  Receive Date: 20140507
  Receipt Date: 20150731
  Transmission Date: 20151125
  Serious: Yes (Hospitalization)
  Sender: FDA-Public Use
  Company Number: FR-SA-2014SA054227

PATIENT
  Age: 33 Year
  Sex: Male

DRUGS (29)
  1. RIFATER [Suspect]
     Active Substance: ISONIAZID\PYRAZINAMIDE\RIFAMPIN
     Indication: LYMPH NODE TUBERCULOSIS
     Dosage: DOSE:5 UNIT(S)
     Route: 048
     Dates: start: 20131123, end: 20140115
  2. ISENTRESS [Suspect]
     Active Substance: RALTEGRAVIR POTASSIUM
     Indication: VIRAL TEST POSITIVE
     Route: 048
     Dates: start: 20131211, end: 20140115
  3. LOVENOX [Concomitant]
     Active Substance: ENOXAPARIN SODIUM
     Route: 058
  4. LINEZOLID. [Concomitant]
     Active Substance: LINEZOLID
  5. IZILOX [Concomitant]
     Active Substance: MOXIFLOXACIN HYDROCHLORIDE
     Dates: start: 20140419
  6. RIMACTAN [Suspect]
     Active Substance: RIFAMPIN
     Indication: PERITONEAL TUBERCULOSIS
     Route: 048
     Dates: start: 20131123, end: 20140115
  7. TRUVADA [Suspect]
     Active Substance: EMTRICITABINE\TENOFOVIR DISOPROXIL FUMARATE
     Indication: VIRAL TEST POSITIVE
     Dosage: DOSE:1 UNIT(S)
     Route: 048
     Dates: start: 20131211, end: 20140115
  8. PHOSPHONEUROS [Concomitant]
     Active Substance: CALCIUM PHOSPHATE, DIBASIC, ANHYDROUS\MAGNESIUM GLYCEROPHOSPHATE\PHOSPHORIC ACID\SODIUM PHOSPHATE, DIBASIC
     Dosage: DOSE:2 UNIT(S)
     Route: 048
  9. AMIKACIN [Concomitant]
     Active Substance: AMIKACIN
  10. LINEZOLID. [Concomitant]
     Active Substance: LINEZOLID
     Dates: start: 20140414
  11. BECILAN [Concomitant]
     Active Substance: PYRIDOXINE
     Dosage: DOSE:1 UNIT(S)
     Route: 048
  12. ETHAMBUTOL [Suspect]
     Active Substance: ETHAMBUTOL HYDROCHLORIDE
     Indication: LYMPH NODE TUBERCULOSIS
     Dosage: DOSE:2 UNIT(S)
     Route: 048
     Dates: start: 20131123, end: 20140115
  13. FUNGIZONE [Concomitant]
     Active Substance: AMPHOTERICIN B
     Dosage: DOSE:6 UNIT(S)
     Route: 048
  14. AMIKACIN [Concomitant]
     Active Substance: AMIKACIN
     Dates: start: 20140410
  15. RIMACTAN [Suspect]
     Active Substance: RIFAMPIN
     Indication: LYMPH NODE TUBERCULOSIS
     Route: 048
     Dates: start: 20131123, end: 20140115
  16. DIFFU K [Concomitant]
     Active Substance: POTASSIUM CHLORIDE
     Dosage: DOSE:2 UNIT(S)
     Route: 048
  17. ZOPICLONE [Concomitant]
     Active Substance: ZOPICLONE
     Dosage: DOSE:1 UNIT(S)
     Route: 048
  18. ATARAX [Concomitant]
     Active Substance: HYDROXYZINE\HYDROXYZINE HYDROCHLORIDE
     Route: 048
  19. BACTRIM [Concomitant]
     Active Substance: SULFAMETHOXAZOLE\TRIMETHOPRIM
     Dosage: DOSE:1 UNIT(S)
     Route: 048
  20. RIMIFON [Concomitant]
     Active Substance: ISONIAZID
  21. IZILOX [Concomitant]
     Active Substance: MOXIFLOXACIN HYDROCHLORIDE
     Dates: start: 20140709
  22. AMIKLIN [Concomitant]
     Active Substance: AMIKACIN SULFATE
     Dates: start: 20140709
  23. AUGMENTIN [Suspect]
     Active Substance: AMOXICILLIN\CLAVULANATE POTASSIUM
     Indication: TONSILLITIS
     Route: 048
     Dates: start: 20140107, end: 20140113
  24. ETHAMBUTOL [Suspect]
     Active Substance: ETHAMBUTOL HYDROCHLORIDE
     Indication: PERITONEAL TUBERCULOSIS
     Dosage: DOSE:2 UNIT(S)
     Route: 048
     Dates: start: 20131123, end: 20140115
  25. AMIKLIN [Concomitant]
     Active Substance: AMIKACIN SULFATE
  26. RIFATER [Suspect]
     Active Substance: ISONIAZID\PYRAZINAMIDE\RIFAMPIN
     Indication: PERITONEAL TUBERCULOSIS
     Dosage: DOSE:5 UNIT(S)
     Route: 048
     Dates: start: 20131123, end: 20140115
  27. ZYPREXA [Concomitant]
     Active Substance: OLANZAPINE
     Route: 048
  28. RIMIFON [Concomitant]
     Active Substance: ISONIAZID
     Dates: start: 20140327
  29. IZILOX [Concomitant]
     Active Substance: MOXIFLOXACIN HYDROCHLORIDE

REACTIONS (2)
  - Drug reaction with eosinophilia and systemic symptoms [Recovered/Resolved]
  - Immune reconstitution inflammatory syndrome [Recovered/Resolved]

NARRATIVE: CASE EVENT DATE: 20140113
